FAERS Safety Report 14999791 (Version 1)
Quarter: 2018Q2

REPORT INFORMATION
  Report Type: Spontaneous
  Country: AU (occurrence: AU)
  Receive Date: 20180523
  Receipt Date: 20180523
  Transmission Date: 20180711
  Serious: Yes (Disabling)
  Sender: FDA-Public Use
  Company Number: None

PATIENT
  Age: 29 Month
  Sex: Male

DRUGS (4)
  1. KINESIOLOGY [Concomitant]
  2. SINGULAIR [Suspect]
     Active Substance: MONTELUKAST SODIUM
     Indication: ASTHMA
     Dosage: ?          QUANTITY:1 DF DOSAGE FORM;?
     Route: 048
  3. ESSENTIAL OILS. [Concomitant]
     Active Substance: ESSENTIAL OILS
  4. ALL NATURAL ALTERNATIVE [Concomitant]

REACTIONS (9)
  - Abnormal behaviour [None]
  - Anxiety [None]
  - Speech disorder [None]
  - Emotional disorder [None]
  - Tooth injury [None]
  - Anger [None]
  - Tooth disorder [None]
  - Sleep terror [None]
  - Food intolerance [None]

NARRATIVE: CASE EVENT DATE: 20121010
